FAERS Safety Report 22139887 (Version 1)
Quarter: 2023Q1

REPORT INFORMATION
  Report Type: Spontaneous
  Country: IN (occurrence: IN)
  Receive Date: 20230327
  Receipt Date: 20230327
  Transmission Date: 20230418
  Serious: Yes (Hospitalization)
  Sender: FDA-Public Use
  Company Number: IN-STRIDES ARCOLAB LIMITED-2023SP004390

PATIENT
  Age: 53 Year
  Sex: Female

DRUGS (3)
  1. TENOFOVIR DISOPROXIL FUMARATE [Suspect]
     Active Substance: TENOFOVIR DISOPROXIL FUMARATE
     Indication: HIV infection
     Dosage: UNK
     Route: 065
  2. LAMIVUDINE [Concomitant]
     Active Substance: LAMIVUDINE
     Indication: HIV infection
     Dosage: 300 MILLIGRAM, THERAPY ONGOING
     Route: 065
  3. EFAVIRENZ [Concomitant]
     Active Substance: EFAVIRENZ
     Indication: HIV infection
     Dosage: 600 MILLIGRAM, THERAPY ONGOING
     Route: 065

REACTIONS (1)
  - Fanconi syndrome [Recovered/Resolved]
